FAERS Safety Report 10041154 (Version 1)
Quarter: 2014Q1

REPORT INFORMATION
  Report Type: Spontaneous
  Country: US (occurrence: US)
  Receive Date: 20140327
  Receipt Date: 20140327
  Transmission Date: 20141002
  Serious: Yes (Hospitalization, Other)
  Sender: FDA-Public Use
  Company Number: US-AMGEN-USASP2014020805

PATIENT
  Sex: Female

DRUGS (6)
  1. DOXORUBICIN [Concomitant]
     Indication: B-CELL LYMPHOMA
     Dosage: UNK
  2. ONCOVIN [Concomitant]
     Indication: B-CELL LYMPHOMA
     Dosage: UNK
  3. PREDNISOLONE [Concomitant]
     Indication: B-CELL LYMPHOMA
     Dosage: UNK
  4. NEULASTA [Suspect]
     Indication: NEUTROPENIA
     Dosage: UNK
     Route: 065
  5. RITUXIMAB [Concomitant]
     Indication: B-CELL LYMPHOMA
     Dosage: UNK
  6. CYCLOPHOSPHAMIDE [Concomitant]
     Indication: B-CELL LYMPHOMA
     Dosage: UNK

REACTIONS (3)
  - Sepsis [Unknown]
  - Neutrophil count abnormal [Unknown]
  - Drug ineffective [Unknown]
